FAERS Safety Report 6367988-3 (Version None)
Quarter: 2009Q3

REPORT INFORMATION
  Report Type: 
  Country: None (occurrence: None)
  Receive Date: 20090922
  Receipt Date: 20090916
  Transmission Date: 20100115
  Serious: No
  Sender: FDA-Public Use
  Company Number: US-JNJFOC-20090905459

PATIENT
  Sex: Female
  Weight: 68.95 kg

DRUGS (2)
  1. DURAGESIC-100 [Suspect]
     Indication: PAIN
     Route: 062
     Dates: start: 20050101
  2. MANY OTHER UNSPECIFIED MEDICATIONS [Concomitant]
     Indication: PAIN
     Route: 065

REACTIONS (3)
  - APPLICATION SITE EROSION [None]
  - INAPPROPRIATE SCHEDULE OF DRUG ADMINISTRATION [None]
  - WRONG TECHNIQUE IN DRUG USAGE PROCESS [None]
